FAERS Safety Report 25467403 (Version 1)
Quarter: 2025Q2

REPORT INFORMATION
  Report Type: Spontaneous
  Country: FR (occurrence: FR)
  Receive Date: 20250623
  Receipt Date: 20250623
  Transmission Date: 20250717
  Serious: Yes (Hospitalization)
  Sender: NOVARTIS
  Company Number: None

PATIENT
  Age: 89 Year
  Sex: Male
  Weight: 80 kg

DRUGS (2)
  1. DABRAFENIB [Suspect]
     Active Substance: DABRAFENIB
     Indication: Lung adenocarcinoma
     Route: 048
     Dates: start: 20250313
  2. TRAMETINIB [Suspect]
     Active Substance: TRAMETINIB
     Indication: Lung adenocarcinoma
     Route: 048
     Dates: start: 20250313

REACTIONS (1)
  - Myasthenia gravis crisis [Recovering/Resolving]

NARRATIVE: CASE EVENT DATE: 20250505
